FAERS Safety Report 5133495-9 (Version None)
Quarter: 2006Q4

REPORT INFORMATION
  Report Type: 
  Country: None (occurrence: None)
  Receive Date: 20061024
  Receipt Date: 20060925
  Transmission Date: 20070319
  Serious: Yes (Death, Hospitalization)
  Sender: FDA-Public Use
  Company Number: PHHO2006EG16125

PATIENT
  Age: 7 Year
  Sex: Female
  Weight: 20 kg

DRUGS (1)
  1. EXJADE [Suspect]
     Indication: BLOOD IRON INCREASED
     Dosage: 375 MG, QD
     Route: 048
     Dates: start: 20050705, end: 20060802

REACTIONS (19)
  - ABDOMINAL PAIN [None]
  - ARTHRALGIA [None]
  - BACK PAIN [None]
  - BRONCHOPNEUMONIA [None]
  - CONCOMITANT DISEASE PROGRESSION [None]
  - DEPRESSED LEVEL OF CONSCIOUSNESS [None]
  - HAEMORRHAGE INTRACRANIAL [None]
  - HYPERTENSION [None]
  - INFECTION [None]
  - JOINT SWELLING [None]
  - KLEBSIELLA SEPSIS [None]
  - OXYGEN SATURATION DECREASED [None]
  - PAIN IN EXTREMITY [None]
  - PUPILS UNEQUAL [None]
  - PYREXIA [None]
  - RESPIRATORY FAILURE [None]
  - SICKLE CELL ANAEMIA WITH CRISIS [None]
  - TACHYCARDIA [None]
  - TACHYPNOEA [None]
